FAERS Safety Report 7392511-4 (Version None)
Quarter: 2011Q2

REPORT INFORMATION
  Report Type: 
  Country: None (occurrence: None)
  Receive Date: 20110404
  Receipt Date: 20110324
  Transmission Date: 20111010
  Serious: Yes (Death, Hospitalization)
  Sender: FDA-Public Use
  Company Number: EG-SANOFI-AVENTIS-2011SA018205

PATIENT
  Age: 59 Year
  Sex: Male

DRUGS (2)
  1. AMARYL [Concomitant]
     Indication: DIABETES MELLITUS
     Route: 048
  2. INSULIN GLARGINE [Suspect]
     Indication: TYPE 2 DIABETES MELLITUS
     Route: 058
     Dates: start: 20100309, end: 20110101

REACTIONS (1)
  - CEREBRAL THROMBOSIS [None]
